FAERS Safety Report 13584310 (Version 1)
Quarter: 2017Q2

REPORT INFORMATION
  Report Type: Spontaneous
  Country: US (occurrence: US)
  Receive Date: 20170526
  Receipt Date: 20170526
  Transmission Date: 20170830
  Serious: No
  Sender: FDA-Public Use
  Company Number: US-PFIZER INC-2017230233

PATIENT
  Age: 63 Year
  Sex: Male
  Weight: 72.11 kg

DRUGS (1)
  1. SUTENT [Suspect]
     Active Substance: SUNITINIB MALATE
     Indication: RENAL CANCER
     Dosage: 37.5 MG, CYCLIC (ONCE DAILY D1 - D28 Q42 D)
     Route: 048
     Dates: start: 20161024, end: 201704

REACTIONS (1)
  - Neoplasm progression [Unknown]
